FAERS Safety Report 18648173 (Version 1)
Quarter: 2020Q4

REPORT INFORMATION
  Report Type: Spontaneous
  Country: US (occurrence: US)
  Receive Date: 20201221
  Receipt Date: 20201221
  Transmission Date: 20210114
  Serious: No
  Sender: FDA-Public Use
  Company Number: None

PATIENT
  Age: 55 Year
  Sex: Male

DRUGS (1)
  1. SYPRINE [Suspect]
     Active Substance: TRIENTINE HYDROCHLORIDE
     Route: 048
     Dates: start: 201712

REACTIONS (5)
  - Confusional state [None]
  - Hypotension [None]
  - Abdominal pain upper [None]
  - Dysphagia [None]
  - Loss of consciousness [None]

NARRATIVE: CASE EVENT DATE: 20201207
